FAERS Safety Report 6601662-0 (Version None)
Quarter: 2010Q1

REPORT INFORMATION
  Report Type: 
  Country: None (occurrence: None)
  Receive Date: 20100218
  Receipt Date: 20100127
  Transmission Date: 20100710
  Serious: Yes (Death)
  Sender: FDA-Public Use
  Company Number: 2009AC000386

PATIENT
  Age: 82 Year
  Sex: Female

DRUGS (30)
  1. DIGOXIN [Suspect]
     Indication: ATRIAL FIBRILLATION
     Dosage: PO
     Route: 048
     Dates: start: 20070801
  2. DIGOXIN [Suspect]
     Dosage: 0.125 MG; QD; PO
     Route: 048
     Dates: start: 20070727
  3. CARDIZEM [Concomitant]
  4. COUMADIN [Concomitant]
  5. KAY CIEL DURA-TABS [Concomitant]
  6. LASIX [Concomitant]
  7. PREDNISONE [Concomitant]
  8. SULFACET [Concomitant]
  9. LIPITOR [Concomitant]
  10. CELEBREX [Concomitant]
  11. EVISTA [Concomitant]
  12. LEXAPRO [Concomitant]
  13. LEVOXYL [Concomitant]
  14. BETAPACE [Concomitant]
  15. LEVOTHROID [Concomitant]
  16. NORVASC [Concomitant]
  17. PROTONIX [Concomitant]
  18. ZESTRIL [Concomitant]
  19. CHONDROITIN SULFATE [Concomitant]
  20. SYNTHROID [Concomitant]
  21. BETAPACE [Concomitant]
  22. LISINOPRIL [Concomitant]
  23. AMLODIPINE [Concomitant]
  24. LEVOXYL [Concomitant]
  25. LASIX [Concomitant]
  26. LASIX [Concomitant]
  27. COUMADIN [Concomitant]
  28. LEXAPRO [Concomitant]
  29. LIPITOR [Concomitant]
  30. CARDIZEM [Concomitant]

REACTIONS (27)
  - ANAEMIA [None]
  - ANOXIC ENCEPHALOPATHY [None]
  - APNOEA [None]
  - ATRIAL FIBRILLATION [None]
  - CARDIAC ARREST [None]
  - CARDIAC FAILURE CONGESTIVE [None]
  - CARDIO-RESPIRATORY ARREST [None]
  - DIZZINESS [None]
  - ECONOMIC PROBLEM [None]
  - EMOTIONAL DISTRESS [None]
  - FAMILY STRESS [None]
  - GASTRIC ULCER HAEMORRHAGE [None]
  - HIATUS HERNIA [None]
  - HYPOMAGNESAEMIA [None]
  - HYPOTENSION [None]
  - LEFT VENTRICULAR HYPERTROPHY [None]
  - LOSS OF CONSCIOUSNESS [None]
  - MITRAL VALVE INCOMPETENCE [None]
  - MULTIPLE INJURIES [None]
  - NEUROLOGICAL DECOMPENSATION [None]
  - PAIN [None]
  - PARTNER STRESS [None]
  - PLEURAL EFFUSION [None]
  - SOCIAL PROBLEM [None]
  - SYNCOPE [None]
  - TRICUSPID VALVE INCOMPETENCE [None]
  - URINARY TRACT INFECTION [None]
